FAERS Safety Report 4327174-5 (Version None)
Quarter: 2004Q1

REPORT INFORMATION
  Report Type: 
  Country: None (occurrence: None)
  Receive Date: 20040330
  Receipt Date: 20040211
  Transmission Date: 20041129
  Serious: No
  Sender: FDA-Public Use
  Company Number: PHRM2004FR00832

PATIENT
  Age: 64 Year
  Sex: Female
  Weight: 64 kg

DRUGS (2)
  1. TAREG [Suspect]
     Dosage: 40 MG, QD
     Route: 048
     Dates: start: 20001001, end: 20030801
  2. LUMITENS [Concomitant]
     Dosage: 1 DF, QD
     Route: 048
     Dates: start: 20001001, end: 20030801

REACTIONS (3)
  - DYSPNOEA [None]
  - LARYNGOSPASM [None]
  - SLEEP APNOEA SYNDROME [None]
